FAERS Safety Report 6043452-6 (Version None)
Quarter: 2009Q1

REPORT INFORMATION
  Report Type: 
  Country: None (occurrence: None)
  Receive Date: 20090115
  Receipt Date: 20090106
  Transmission Date: 20090719
  Serious: Yes (Death)
  Sender: FDA-Public Use
  Company Number: DSA_33010_2009

PATIENT
  Sex: Female

DRUGS (2)
  1. CITALOPRAM HYDROBROMIDE [Suspect]
     Indication: DRUG USE FOR UNKNOWN INDICATION
     Dosage: ( DF ORAL)
     Route: 048
  2. HEROIN [Suspect]
     Indication: DRUG USE FOR UNKNOWN INDICATION
     Dosage: ( DF )

REACTIONS (4)
  - CARDIAC ARREST [None]
  - COMPLETED SUICIDE [None]
  - INTENTIONAL DRUG MISUSE [None]
  - RESPIRATORY ARREST [None]
